FAERS Safety Report 12497854 (Version 1)
Quarter: 2016Q2

REPORT INFORMATION
  Report Type: Spontaneous
  Country: GB (occurrence: GB)
  Receive Date: 20160625
  Receipt Date: 20160625
  Transmission Date: 20160815
  Serious: Yes (Other)
  Sender: FDA-Public Use
  Company Number: GB-APOTEX-2016AP009436

PATIENT

DRUGS (13)
  1. PAROXETINE. [Suspect]
     Active Substance: PAROXETINE
     Indication: DEPRESSION
     Dosage: UNK
     Route: 065
     Dates: start: 20050831, end: 20081118
  2. HERBAL REMEDY [Concomitant]
     Dates: start: 200509
  3. ANTIHISTAMINE [Concomitant]
     Active Substance: UNSPECIFIED INGREDIENT
     Indication: RASH
     Dates: start: 200402
  4. PAROXETINE HYDROCHLORIDE TABLET [Suspect]
     Active Substance: PAROXETINE HYDROCHLORIDE
     Indication: DEPRESSION
     Dosage: 20 MG, BID
     Route: 048
     Dates: start: 20030528, end: 20061201
  5. FLUOXETINE [Concomitant]
     Active Substance: FLUOXETINE HYDROCHLORIDE
     Dates: start: 200806
  6. PAROXETINE. [Suspect]
     Active Substance: PAROXETINE
     Dosage: 15 MG, QD
     Route: 065
     Dates: start: 20060223
  7. PAXIL [Suspect]
     Active Substance: PAROXETINE HYDROCHLORIDE
     Indication: DEPRESSION
     Dosage: UNK
     Route: 065
     Dates: start: 20030521
  8. CIPRALEX [Concomitant]
     Active Substance: ESCITALOPRAM OXALATE
     Route: 065
     Dates: start: 20060223, end: 200607
  9. FINASTERIDE. [Concomitant]
     Active Substance: FINASTERIDE
     Indication: ALOPECIA
     Dates: start: 20070605
  10. PAROXETINE HYDROCHLORIDE TABLET [Suspect]
     Active Substance: PAROXETINE HYDROCHLORIDE
     Dosage: 30 MG, QD
     Route: 048
     Dates: start: 20051007, end: 20060908
  11. PAXIL [Suspect]
     Active Substance: PAROXETINE HYDROCHLORIDE
     Dosage: 20 MG, BID
     Route: 048
     Dates: start: 20030521, end: 20121231
  12. PAROXETINE ORAL SOLUTION [Suspect]
     Active Substance: PAROXETINE
     Indication: DEPRESSION
     Dosage: UNK
     Route: 048
     Dates: start: 20070105, end: 20070605
  13. DIAZEPAM. [Concomitant]
     Active Substance: DIAZEPAM
     Route: 065
     Dates: start: 20051007

REACTIONS (33)
  - Nightmare [Recovered/Resolved]
  - Tearfulness [Unknown]
  - Palpitations [Unknown]
  - Vision blurred [Unknown]
  - Memory impairment [Unknown]
  - Poor quality sleep [Unknown]
  - Rash pruritic [Unknown]
  - Thought insertion [Recovered/Resolved]
  - Visual impairment [Not Recovered/Not Resolved]
  - Fatigue [Recovered/Resolved]
  - Depressed mood [Unknown]
  - Vitreous floaters [Unknown]
  - Suicidal ideation [Unknown]
  - Disturbance in attention [Not Recovered/Not Resolved]
  - Vertigo [Unknown]
  - Balance disorder [Not Recovered/Not Resolved]
  - Confusional state [Unknown]
  - Anxiety [Unknown]
  - Hypoacusis [Unknown]
  - Myalgia [Unknown]
  - Drug withdrawal syndrome [Unknown]
  - Aggression [Unknown]
  - Dizziness [Unknown]
  - Memory impairment [Unknown]
  - Photosensitivity reaction [Unknown]
  - Derealisation [Unknown]
  - Anhedonia [Unknown]
  - Decreased appetite [Unknown]
  - Hyperhidrosis [Unknown]
  - Condition aggravated [Unknown]
  - Apathy [Unknown]
  - Loss of libido [Unknown]
  - Frustration tolerance decreased [Unknown]

NARRATIVE: CASE EVENT DATE: 20040212
